FAERS Safety Report 7035265-3 (Version None)
Quarter: 2010Q4

REPORT INFORMATION
  Report Type: 
  Country: None (occurrence: None)
  Receive Date: 20101008
  Receipt Date: 20101001
  Transmission Date: 20110411
  Serious: Yes (Other)
  Sender: FDA-Public Use
  Company Number: A0884501A

PATIENT
  Age: 20 Year
  Sex: Female

DRUGS (2)
  1. PAXIL [Suspect]
     Indication: ANXIETY
     Dosage: 20MG PER DAY
     Route: 048
     Dates: start: 20100801, end: 20100920
  2. ORTHO EVRA [Concomitant]

REACTIONS (10)
  - AMNESIA [None]
  - BACK PAIN [None]
  - DISSOCIATION [None]
  - DRUG DEPENDENCE [None]
  - EUPHORIC MOOD [None]
  - FEELING ABNORMAL [None]
  - INSOMNIA [None]
  - MIGRAINE [None]
  - PARAESTHESIA [None]
  - WITHDRAWAL SYNDROME [None]
